FAERS Safety Report 9693057 (Version 2)
Quarter: 2013Q4

REPORT INFORMATION
  Report Type: Spontaneous
  Country: HU (occurrence: HU)
  Receive Date: 20131118
  Receipt Date: 20131218
  Transmission Date: 20140711
  Serious: Yes (Other)
  Sender: FDA-Public Use
  Company Number: HU-TEVA-443377ISR

PATIENT
  Sex: 0

DRUGS (4)
  1. ACETYLSALICYLIC ACID [Suspect]
     Indication: CEREBROVASCULAR ACCIDENT
     Dosage: 100 MILLIGRAM DAILY;
  2. CLOPIDOGREL [Suspect]
     Indication: CEREBROVASCULAR ACCIDENT
     Dosage: 75 MILLIGRAM DAILY;
  3. NA HEPARIN [Suspect]
     Indication: CEREBROVASCULAR ACCIDENT
     Dosage: 3000-5000 IU ADMINISTERED INTRAOPERATIVELY
  4. LOW MOLECULAR WEIGHT HEPARIN [Suspect]
     Indication: CEREBROVASCULAR ACCIDENT

REACTIONS (3)
  - Cerebral haemorrhage [Unknown]
  - Subarachnoid haemorrhage [Unknown]
  - Ischaemic stroke [Unknown]
